FAERS Safety Report 11567593 (Version 1)
Quarter: 2015Q3

REPORT INFORMATION
  Report Type: Spontaneous
  Country: US (occurrence: US)
  Receive Date: 20150916
  Receipt Date: 20150916
  Transmission Date: 20151125
  Serious: No
  Sender: FDA-Public Use
  Company Number: US-ELI_LILLY_AND_COMPANY-US200907005908

PATIENT
  Sex: Female

DRUGS (2)
  1. FORTEO [Suspect]
     Active Substance: TERIPARATIDE
     Indication: OSTEOPOROSIS
     Dosage: UNK, UNK
     Dates: end: 20090724
  2. FORTEO [Suspect]
     Active Substance: TERIPARATIDE
     Dates: start: 20090726

REACTIONS (6)
  - Dyspnoea [Recovered/Resolved]
  - Spinal pain [Recovered/Resolved]
  - Blister [Recovering/Resolving]
  - Exposure to toxic agent [Unknown]
  - Feeling abnormal [Recovered/Resolved]
  - Adverse reaction [Unknown]

NARRATIVE: CASE EVENT DATE: 200907
